FAERS Safety Report 10657789 (Version 1)
Quarter: 2014Q4

REPORT INFORMATION
  Report Type: Spontaneous
  Country: US (occurrence: None)
  Receive Date: 20141205
  Receipt Date: 20141205
  Transmission Date: 20150529
  Serious: Yes (Other)
  Sender: FDA-Public Use
  Company Number: USA-2014103700

PATIENT
  Age: 70 Year
  Sex: Female

DRUGS (1)
  1. POMALYST [Suspect]
     Active Substance: POMALIDOMIDE
     Indication: PLASMA CELL MYELOMA
     Dosage: 2 MG,  21 IN 21 D, PO
     Route: 048
     Dates: start: 20141002

REACTIONS (9)
  - Ear congestion [None]
  - Hypoaesthesia [None]
  - Gastrooesophageal reflux disease [None]
  - Gait disturbance [None]
  - Feeling abnormal [None]
  - Nausea [None]
  - Dizziness [None]
  - Dry mouth [None]
  - Chest pain [None]
